FAERS Safety Report 12116873 (Version 1)
Quarter: 2016Q1

REPORT INFORMATION
  Report Type: Report from Study
  Country: CA (occurrence: CA)
  Receive Date: 20160225
  Receipt Date: 20160225
  Transmission Date: 20160526
  Serious: Yes (Hospitalization)
  Sender: FDA-Public Use
  Company Number: CA-TAKEDA-2015TUS009335

PATIENT
  Age: 46 Year
  Sex: Female

DRUGS (8)
  1. VEDOLIZUMAB [Suspect]
     Active Substance: VEDOLIZUMAB
     Indication: COLITIS ULCERATIVE
     Dosage: 300 MG, UNK
     Route: 042
     Dates: start: 20150604, end: 20151230
  2. PENTASA [Concomitant]
     Active Substance: MESALAMINE
     Dosage: 4 MG, BID
     Dates: start: 20150518, end: 20150605
  3. PREDNISONE. [Suspect]
     Active Substance: PREDNISONE
     Indication: RHEUMATIC DISORDER
     Dosage: 40 MG, UNK
     Route: 065
     Dates: start: 201511
  4. PREDNISONE. [Suspect]
     Active Substance: PREDNISONE
     Dosage: UNK
  5. COLACE [Concomitant]
     Active Substance: DOCUSATE SODIUM
     Dosage: UNK, QD
  6. DEXILANT [Suspect]
     Active Substance: DEXLANSOPRAZOLE
     Indication: PRODUCT USED FOR UNKNOWN INDICATION
     Dosage: 60 MG, QD
     Route: 065
     Dates: end: 20150630
  7. METHOTREXATE [Suspect]
     Active Substance: METHOTREXATE
     Indication: RHEUMATIC DISORDER
     Dosage: UNK
     Route: 065
     Dates: start: 20151221, end: 20160123
  8. VITAMIN D [Concomitant]
     Active Substance: CHOLECALCIFEROL
     Dosage: 1000 MG, QD

REACTIONS (2)
  - Pneumonia [Unknown]
  - Back pain [Unknown]

NARRATIVE: CASE EVENT DATE: 20150703
